FAERS Safety Report 19042106 (Version 1)
Quarter: 2021Q1

REPORT INFORMATION
  Report Type: Spontaneous
  Country: US (occurrence: US)
  Receive Date: 20210323
  Receipt Date: 20210323
  Transmission Date: 20210420
  Serious: Yes (Hospitalization)
  Sender: FDA-Public Use
  Company Number: US-BIOVITRUM-2021US2823

PATIENT
  Age: 1 Month
  Sex: Male
  Weight: 4 kg

DRUGS (5)
  1. POLY?VI?SOL WITH IRON [Concomitant]
     Active Substance: IRON\VITAMINS
  2. DIURIL [Concomitant]
     Active Substance: CHLOROTHIAZIDE
     Dosage: 250 MG/5ML ORAL SUSP
  3. SYNAGIS [Suspect]
     Active Substance: PALIVIZUMAB
     Indication: ATRIAL SEPTAL DEFECT
  4. URSODIOL. [Concomitant]
     Active Substance: URSODIOL
  5. SYNAGIS [Suspect]
     Active Substance: PALIVIZUMAB
     Indication: PULMONARY ARTERIAL HYPERTENSION
     Dosage: SYNAGIS 100MG/1ML VL LIQUID
     Route: 030
     Dates: start: 20210212

REACTIONS (1)
  - Hepatic enzyme increased [Unknown]

NARRATIVE: CASE EVENT DATE: 20210214
